FAERS Safety Report 8955706 (Version 4)
Quarter: 2013Q2

REPORT INFORMATION
  Report Type: Spontaneous
  Country: US (occurrence: US)
  Receive Date: 20121207
  Receipt Date: 20130402
  Transmission Date: 20140414
  Serious: Yes (Death, Hospitalization)
  Sender: FDA-Public Use
  Company Number: US-GILEAD-2012-0065843

PATIENT
  Age: 74 Year
  Sex: Male

DRUGS (2)
  1. LETAIRIS [Suspect]
     Indication: PULMONARY HYPERTENSION
     Dosage: 5 MG, UNK
     Route: 048
     Dates: start: 20111229, end: 20121114
  2. LETAIRIS [Suspect]
     Indication: PULMONARY EMBOLISM

REACTIONS (3)
  - Respiratory failure [Fatal]
  - Respiratory distress [Fatal]
  - Pulmonary oedema [Fatal]
